FAERS Safety Report 17493471 (Version 1)
Quarter: 2020Q1

REPORT INFORMATION
  Report Type: Spontaneous
  Country: US (occurrence: US)
  Receive Date: 20200303
  Receipt Date: 20200303
  Transmission Date: 20200409
  Serious: No
  Sender: FDA-Public Use
  Company Number: US-AMNEAL PHARMACEUTICALS-2019-IPXL-00900

PATIENT
  Age: 77 Year
  Sex: Female

DRUGS (5)
  1. RYTARY [Suspect]
     Active Substance: CARBIDOPA\LEVODOPA
     Indication: PARKINSON^S DISEASE
     Dosage: 9 DOSAGE FORM, DAILY (2 CAPSULES AT 7AM-11AM-3PM-7PM AND 1 CAPSULE AT 11PM , TOTAL OF 5 TIMES DAILY)
     Route: 048
  2. SELEGILINE [Concomitant]
     Active Substance: SELEGILINE
     Indication: PRODUCT USED FOR UNKNOWN INDICATION
     Dosage: 5 MILLIGRAM, 2 /DAY
     Route: 065
  3. ASPIRIN [ACETYLSALICYLIC ACID] [Concomitant]
     Active Substance: ASPIRIN
     Indication: PRODUCT USED FOR UNKNOWN INDICATION
     Dosage: 81 MILLIGRAM, DAILY
     Route: 065
  4. NEUPRO [Concomitant]
     Active Substance: ROTIGOTINE
     Indication: PARKINSON^S DISEASE
     Dosage: 6 MILLIGRAM, DAILY
     Route: 065
  5. MESALAZINE [Concomitant]
     Active Substance: MESALAMINE
     Indication: COLITIS ULCERATIVE
     Dosage: 4 DOSAGE FORM, DAILY
     Route: 065

REACTIONS (1)
  - Therapeutic response shortened [Not Recovered/Not Resolved]
